FAERS Safety Report 10045809 (Version 2)
Quarter: 2014Q2

REPORT INFORMATION
  Report Type: Spontaneous
  Country: US (occurrence: US)
  Receive Date: 20140328
  Receipt Date: 20140418
  Transmission Date: 20141212
  Serious: Yes (Death, Hospitalization, Other)
  Sender: FDA-Public Use
  Company Number: US-ASTRAZENECA-2014SE20400

PATIENT
  Age: 25426 Day
  Sex: Female

DRUGS (3)
  1. FASLODEX [Suspect]
     Indication: BREAST CANCER METASTATIC
     Route: 030
     Dates: start: 20140220, end: 20140320
  2. OXYCODONE [Concomitant]
     Indication: PAIN
     Dosage: PRN
     Route: 048
     Dates: start: 20131223
  3. SYNTHROID [Concomitant]
     Indication: HYPOTHYROIDISM
     Route: 048

REACTIONS (5)
  - Hepatic failure [Fatal]
  - Jaundice cholestatic [Unknown]
  - Metastases to liver [Unknown]
  - Obstruction [Unknown]
  - Blood bilirubin increased [Not Recovered/Not Resolved]
